FAERS Safety Report 6221856-6 (Version None)
Quarter: 2009Q2

REPORT INFORMATION
  Report Type: 
  Country: None (occurrence: None)
  Receive Date: 20090609
  Receipt Date: 20090601
  Transmission Date: 20091009
  Serious: Yes (Death, Other)
  Sender: FDA-Public Use
  Company Number: 2009US001986

PATIENT
  Age: 25 Year
  Sex: Female

DRUGS (4)
  1. PROGRAF [Suspect]
     Indication: RENAL TRANSPLANT
     Dosage: 3 MG, 2/1 DAY
     Dates: start: 20071213
  2. BELATACEPT(BELATACEPT) [Suspect]
     Indication: RENAL TRANSPLANT
     Dosage: 750 MG, UID/QD, IV NOS, 500 MG, UID/QD, IV NOS
     Route: 042
     Dates: start: 20071026, end: 20071026
  3. BELATACEPT(BELATACEPT) [Suspect]
     Indication: RENAL TRANSPLANT
     Dosage: 750 MG, UID/QD, IV NOS, 500 MG, UID/QD, IV NOS
     Route: 042
     Dates: start: 20071121, end: 20071121
  4. BELATACEPT(BELATACEPT) [Suspect]
     Indication: RENAL TRANSPLANT
     Dosage: 750 MG, UID/QD, IV NOS, 500 MG, UID/QD, IV NOS
     Route: 042
     Dates: start: 20071205, end: 20071205

REACTIONS (3)
  - POOR VENOUS ACCESS [None]
  - RENAL FAILURE [None]
  - SEPSIS [None]
